FAERS Safety Report 8473504-2 (Version None)
Quarter: 2012Q2

REPORT INFORMATION
  Report Type: 
  Country: None (occurrence: None)
  Receive Date: 20120625
  Receipt Date: 20120625
  Transmission Date: 20120825
  Serious: Yes (Disabling, Other)
  Sender: FDA-Public Use
  Company Number: None

PATIENT
  Age: 61 Year
  Sex: Male
  Weight: 97.5234 kg

DRUGS (1)
  1. ORTHOVISC 2ML J+J / DEPUY MITEK / ANIKA [Suspect]
     Indication: ARTHRITIS
     Dosage: ONE INJECTION 3 TIMES OVER 3 WEE
     Dates: start: 20120613, end: 20120622

REACTIONS (5)
  - GAIT DISTURBANCE [None]
  - PAIN [None]
  - ARTHRALGIA [None]
  - WEIGHT BEARING DIFFICULTY [None]
  - GENERAL PHYSICAL HEALTH DETERIORATION [None]
